FAERS Safety Report 5250770-8 (Version None)
Quarter: 2007Q1

REPORT INFORMATION
  Report Type: 
  Country: None (occurrence: None)
  Receive Date: 20070228
  Receipt Date: 20070215
  Transmission Date: 20070707
  Serious: Yes (Hospitalization)
  Sender: FDA-Public Use
  Company Number: AU-ELI_LILLY_AND_COMPANY-AU200701005513

PATIENT
  Age: 64 Year
  Sex: Female

DRUGS (1)
  1. EVISTA [Suspect]
     Indication: MENOPAUSAL SYMPTOMS
     Dosage: 60 MG, DAILY (1/D)
     Dates: start: 20030101, end: 20060901

REACTIONS (1)
  - ENDOMETRIAL CANCER STAGE III [None]
